FAERS Safety Report 12322098 (Version 5)
Quarter: 2016Q3

REPORT INFORMATION
  Report Type: Spontaneous
  Country: US (occurrence: US)
  Receive Date: 20160502
  Receipt Date: 20160922
  Transmission Date: 20161109
  Serious: Yes (Death, Other)
  Sender: FDA-Public Use
  Company Number: US-009507513-1604USA016304

PATIENT
  Sex: Male

DRUGS (6)
  1. FLOMAX [Suspect]
     Active Substance: TAMSULOSIN HYDROCHLORIDE
     Indication: PROSTATOMEGALY
     Dosage: 0.4 MG, UNK
     Route: 048
     Dates: start: 20041004, end: 200911
  2. FLOMAX [Suspect]
     Active Substance: TAMSULOSIN HYDROCHLORIDE
     Indication: CYSTITIS
     Dosage: 0.4 MG, UNK
     Route: 048
     Dates: start: 200805, end: 201012
  3. FINASTERIDE. [Suspect]
     Active Substance: FINASTERIDE
     Indication: CYSTITIS
  4. PROSCAR [Suspect]
     Active Substance: FINASTERIDE
     Indication: BENIGN PROSTATIC HYPERPLASIA
     Dosage: 5 MG, UNK
     Route: 048
     Dates: start: 20041004, end: 200801
  5. FINASTERIDE. [Suspect]
     Active Substance: FINASTERIDE
     Indication: BENIGN PROSTATIC HYPERPLASIA
     Dosage: 5 MG, UNK
     Route: 048
     Dates: start: 200802, end: 201010
  6. PROSCAR [Suspect]
     Active Substance: FINASTERIDE
     Indication: CYSTITIS

REACTIONS (14)
  - Exostosis [Unknown]
  - Respiratory arrest [Fatal]
  - Arthralgia [Unknown]
  - Erectile dysfunction [Unknown]
  - Adenotonsillectomy [Unknown]
  - Restless legs syndrome [Unknown]
  - Metastasis [Fatal]
  - Breast cancer metastatic [Fatal]
  - Deep vein thrombosis [Unknown]
  - Meniscus removal [Unknown]
  - Libido decreased [Unknown]
  - Cerebral haemorrhage [Fatal]
  - Hypothyroidism [Unknown]
  - Brain cancer metastatic [Unknown]

NARRATIVE: CASE EVENT DATE: 2004
